FAERS Safety Report 8691156 (Version 2)
Quarter: 2012Q4

REPORT INFORMATION
  Report Type: 
  Country: BR (occurrence: BR)
  Receive Date: 20120730
  Receipt Date: 20120830
  Transmission Date: 20130627
  Serious: Yes (Other)
  Sender: FDA-Public Use
  Company Number: BR-NOVOPROD-356344

PATIENT
  Age: 30 Year
  Sex: Male
  Weight: 89 kg

DRUGS (5)
  1. VICTOZA [Suspect]
     Indication: DIABETES MELLITUS
     Dosage: 0.6 mg, qd
     Route: 058
     Dates: start: 20120414
  2. VICTOZA [Suspect]
     Indication: WEIGHT DECREASED
     Dosage: 1.2 mg, qd
     Route: 058
  3. ARADOIS [Concomitant]
     Dosage: UNK UNK, qd
  4. GLIFAGE [Concomitant]
  5. SINVASCOR [Concomitant]

REACTIONS (1)
  - Haematochezia [Unknown]
